FAERS Safety Report 6276381 (Version 3)
Quarter: 2017Q3

REPORT INFORMATION
  Report Type: Spontaneous
  Country: US (occurrence: US)
  Receive Date: 20061108
  Receipt Date: 20170927
  Transmission Date: 20171128
  Serious: Yes (Death, Hospitalization, Other)
  Sender: FDA-Public Use
  Company Number: US-PFIZER INC-2006133979

PATIENT
  Age: 81 Year
  Sex: Female

DRUGS (2)
  1. BEXTRA [Suspect]
     Active Substance: VALDECOXIB
     Indication: ARTHRITIS
     Dosage: 10 MG, 1X/DAY
     Dates: start: 2002, end: 2004
  2. VIOXX [Suspect]
     Active Substance: ROFECOXIB
     Dosage: UNK
     Dates: start: 20010101, end: 20040506

REACTIONS (3)
  - Arteriosclerosis [Fatal]
  - Ischaemic stroke [Unknown]
  - Acute myocardial infarction [Fatal]

NARRATIVE: CASE EVENT DATE: 20030527
